FAERS Safety Report 12157543 (Version 5)
Quarter: 2016Q2

REPORT INFORMATION
  Report Type: Report from Study
  Country: US (occurrence: US)
  Receive Date: 20160308
  Receipt Date: 20160606
  Transmission Date: 20160815
  Serious: Yes (Hospitalization)
  Sender: FDA-Public Use
  Company Number: PHEH2016US005520

PATIENT
  Age: 50 Year
  Sex: Male
  Weight: 278 kg

DRUGS (1)
  1. GILENYA [Suspect]
     Active Substance: FINGOLIMOD HYDROCHLORIDE
     Indication: MULTIPLE SCLEROSIS
     Dosage: 0.5 MG, QD
     Route: 048
     Dates: start: 201509

REACTIONS (2)
  - Lower limb fracture [Recovered/Resolved with Sequelae]
  - Accident at work [Unknown]

NARRATIVE: CASE EVENT DATE: 20160303
